FAERS Safety Report 25192597 (Version 2)
Quarter: 2025Q2

REPORT INFORMATION
  Report Type: Spontaneous
  Country: CN (occurrence: CN)
  Receive Date: 20250414
  Receipt Date: 20250417
  Transmission Date: 20250717
  Serious: Yes (Hospitalization)
  Sender: PFIZER
  Company Number: CN-MLMSERVICE-20250331-PI464423-00270-1

PATIENT
  Age: 63 Year
  Sex: Male

DRUGS (13)
  1. METHYLPREDNISOLONE [Suspect]
     Active Substance: METHYLPREDNISOLONE
     Indication: Babesiosis
     Dosage: 80 MG, 1X/DAY
  2. METHYLPREDNISOLONE [Suspect]
     Active Substance: METHYLPREDNISOLONE
     Indication: Polymyalgia rheumatica
     Dosage: 40 MG, 1X/DAY
  3. METHYLPREDNISOLONE [Suspect]
     Active Substance: METHYLPREDNISOLONE
     Indication: Giant cell arteritis
     Dosage: 20 MG, 1X/DAY
  4. METHYLPREDNISOLONE [Suspect]
     Active Substance: METHYLPREDNISOLONE
     Dosage: 8 MG, 1X/DAY
  5. ARTEMETHER [Suspect]
     Active Substance: ARTEMETHER
     Indication: Babesiosis
  6. ARTEMETHER [Suspect]
     Active Substance: ARTEMETHER
     Indication: Polymyalgia rheumatica
  7. ARTEMETHER [Suspect]
     Active Substance: ARTEMETHER
     Indication: Giant cell arteritis
  8. ATOVAQUONE [Suspect]
     Active Substance: ATOVAQUONE
     Indication: Babesiosis
  9. ATOVAQUONE [Suspect]
     Active Substance: ATOVAQUONE
     Indication: Giant cell arteritis
  10. ATOVAQUONE [Suspect]
     Active Substance: ATOVAQUONE
     Indication: Polymyalgia rheumatica
  11. AZITHROMYCIN [Suspect]
     Active Substance: AZITHROMYCIN
     Indication: Babesiosis
  12. AZITHROMYCIN [Suspect]
     Active Substance: AZITHROMYCIN
     Indication: Giant cell arteritis
  13. AZITHROMYCIN [Suspect]
     Active Substance: AZITHROMYCIN
     Indication: Polymyalgia rheumatica

REACTIONS (3)
  - Babesiosis [Recovered/Resolved]
  - Condition aggravated [Recovered/Resolved]
  - Off label use [Unknown]
